FAERS Safety Report 11220000 (Version 1)
Quarter: 2015Q2

REPORT INFORMATION
  Report Type: Spontaneous
  Country: US (occurrence: None)
  Receive Date: 20150624
  Receipt Date: 20150624
  Transmission Date: 20150821
  Serious: Yes (Other)
  Sender: FDA-Public Use
  Company Number: None

PATIENT
  Age: 51 Year
  Sex: Male

DRUGS (1)
  1. RISPERIDONE 3MG TORRENT [Suspect]
     Active Substance: RISPERIDONE
     Indication: FEELING OF RELAXATION
     Route: 048
     Dates: start: 1991

REACTIONS (4)
  - Feeling abnormal [None]
  - Product quality issue [None]
  - Insomnia [None]
  - Product substitution issue [None]
